FAERS Safety Report 8245151-9 (Version None)
Quarter: 2012Q1

REPORT INFORMATION
  Report Type: 
  Country: None (occurrence: None)
  Receive Date: 20120329
  Receipt Date: 20120322
  Transmission Date: 20120608
  Serious: Yes (Hospitalization)
  Sender: FDA-Public Use
  Company Number: FR-ABBOTT-12P-056-0917817-00

PATIENT
  Age: 46 Year
  Sex: Male

DRUGS (1)
  1. TARKA [Suspect]
     Indication: HYPERTENSION

REACTIONS (3)
  - SINUSITIS [None]
  - SALIVARY GLAND DISORDER [None]
  - PAROTID GLAND ENLARGEMENT [None]
